APPROVED DRUG PRODUCT: EMSAM
Active Ingredient: SELEGILINE
Strength: 12MG/24HR
Dosage Form/Route: FILM, EXTENDED RELEASE;TRANSDERMAL
Application: N021336 | Product #003
Applicant: SOMERSET PHARMACEUTICALS INC
Approved: Feb 27, 2006 | RLD: Yes | RS: No | Type: RX